FAERS Safety Report 18528838 (Version 1)
Quarter: 2020Q4

REPORT INFORMATION
  Report Type: Report from Study
  Country: US (occurrence: US)
  Receive Date: 20201120
  Receipt Date: 20201120
  Transmission Date: 20210114
  Serious: Yes (Hospitalization)
  Sender: FDA-Public Use
  Company Number: US-MORPHOSYS US-2020-MOR000795-US

PATIENT
  Sex: Female

DRUGS (3)
  1. MONJUVI [Suspect]
     Active Substance: TAFASITAMAB-CXIX
     Dosage: CYCLE 1
     Dates: start: 20200918, end: 20200918
  2. MONJUVI [Suspect]
     Active Substance: TAFASITAMAB-CXIX
     Indication: PRODUCT USED FOR UNKNOWN INDICATION
     Dosage: CYCLE 1
     Dates: start: 20200915, end: 20200915
  3. MONJUVI [Suspect]
     Active Substance: TAFASITAMAB-CXIX
     Dosage: CYCLE 1
     Dates: start: 20200922, end: 20200922

REACTIONS (5)
  - Nasal congestion [Unknown]
  - Pyrexia [Unknown]
  - Pneumonia [Unknown]
  - Influenza [Unknown]
  - Cough [Unknown]

NARRATIVE: CASE EVENT DATE: 202009
